FAERS Safety Report 8536468-9 (Version None)
Quarter: 2012Q3

REPORT INFORMATION
  Report Type: 
  Country: None (occurrence: None)
  Receive Date: 20120712
  Receipt Date: 20120604
  Transmission Date: 20120928
  Serious: Yes (Other)
  Sender: FDA-Public Use
  Company Number: 2012-2528

PATIENT
  Sex: Female

DRUGS (1)
  1. AZZALURE (BOTULINUM TOXIN TYPE 1) (BOTULINUM TOXIN TYPE A) ABOBOTULINU [Suspect]
     Indication: SKIN WRINKLING
     Dosage: SINGLE CYCLE
     Dates: start: 20120604, end: 20120604

REACTIONS (4)
  - PYREXIA [None]
  - SWELLING FACE [None]
  - FLUSHING [None]
  - CHILLS [None]
